FAERS Safety Report 26080565 (Version 1)
Quarter: 2025Q4

REPORT INFORMATION
  Report Type: Report from Study
  Country: IN (occurrence: IN)
  Receive Date: 20251124
  Receipt Date: 20251124
  Transmission Date: 20260118
  Serious: Yes (Death)
  Sender: ROCHE
  Company Number: IN-ROCHE-10000442584

PATIENT
  Age: 51 Year
  Sex: Male

DRUGS (1)
  1. ACTEMRA [Suspect]
     Active Substance: TOCILIZUMAB
     Indication: Rheumatoid arthritis
     Dosage: FREQUENCY: 1
     Route: 042
     Dates: start: 20250903

REACTIONS (1)
  - Death [Fatal]
